FAERS Safety Report 15288547 (Version 1)
Quarter: 2018Q3

REPORT INFORMATION
  Report Type: Spontaneous
  Country: US (occurrence: US)
  Receive Date: 20180817
  Receipt Date: 20180817
  Transmission Date: 20181010
  Serious: Yes (Hospitalization)
  Sender: FDA-Public Use
  Company Number: US-VERTEX PHARMACEUTICALS-2018-005772

PATIENT
  Sex: Male

DRUGS (8)
  1. CLINDAMYCIN. [Concomitant]
     Active Substance: CLINDAMYCIN
  2. PULMOZYME [Concomitant]
     Active Substance: DORNASE ALFA
  3. RANITIDINE. [Concomitant]
     Active Substance: RANITIDINE
  4. ORKAMBI [Suspect]
     Active Substance: IVACAFTOR\LUMACAFTOR
     Indication: CYSTIC FIBROSIS
     Dosage: 200/125 MG, BID
     Route: 048
     Dates: start: 20180228
  5. TOBRAMYCIN. [Concomitant]
     Active Substance: TOBRAMYCIN
  6. NYSTATIN. [Concomitant]
     Active Substance: NYSTATIN
  7. CYPROHEPTADINE. [Concomitant]
     Active Substance: CYPROHEPTADINE
  8. SULFATRIM [Concomitant]
     Active Substance: SULFAMETHOXAZOLE\TRIMETHOPRIM

REACTIONS (1)
  - Sinus disorder [Unknown]

NARRATIVE: CASE EVENT DATE: 2018
